FAERS Safety Report 16823901 (Version 3)
Quarter: 2019Q4

REPORT INFORMATION
  Report Type: Report from Study
  Country: US (occurrence: US)
  Receive Date: 20190918
  Receipt Date: 20191105
  Transmission Date: 20200122
  Serious: Yes (Hospitalization)
  Sender: FDA-Public Use
  Company Number: US-ADAMAS PHARMA, LLC-2019ADA01656

PATIENT
  Age: 71 Year
  Sex: Male
  Weight: 117 kg

DRUGS (28)
  1. GOCOVRI [Suspect]
     Active Substance: AMANTADINE
     Indication: DYSKINESIA
     Dosage: 137 MG, 1X/DAY AT BEDTIME
     Route: 048
     Dates: start: 20190311, end: 20190317
  2. GOCOVRI [Suspect]
     Active Substance: AMANTADINE
     Dosage: 274 MG, 1X/DAY AT BEDTIME
     Route: 048
     Dates: start: 20190318, end: 201903
  3. GOCOVRI [Suspect]
     Active Substance: AMANTADINE
     Dosage: 137 MG, 1X/DAY AT BEDTIME
     Route: 048
     Dates: start: 2019
  4. CENTRUM MEN [Concomitant]
  5. FISH OIL [Concomitant]
     Active Substance: FISH OIL
  6. UNSPECIFIED PROSTATE SUPPLEMENT [Concomitant]
  7. ASPIRIN. [Concomitant]
     Active Substance: ASPIRIN
     Dosage: 81 MG, 1X/DAY
     Route: 048
  8. SINEMET [Concomitant]
     Active Substance: CARBIDOPA\LEVODOPA
     Dosage: 1.5 TABLETS, 4X/DAY
     Route: 048
  9. SUPER B-50 COMPLEX [Concomitant]
  10. CHOLECALCIFEROL [Concomitant]
     Active Substance: CHOLECALCIFEROL
     Dosage: 1000 U, 1X/DAY
  11. ECONAZOLE. [Concomitant]
     Active Substance: ECONAZOLE NITRATE
     Dosage: 1 APPLICATION 2X/DAY AS NEEDED WHEN FLARE UP
     Route: 061
  12. GOCOVRI [Suspect]
     Active Substance: AMANTADINE
     Dosage: 137 MG, 1X/DAY AT BEDTIME
     Route: 048
     Dates: start: 201903, end: 2019
  13. CELEXA [Concomitant]
     Active Substance: CITALOPRAM HYDROBROMIDE
     Dosage: 40 MG, 1X/DAY
     Route: 048
  14. FINASTERIDE. [Concomitant]
     Active Substance: FINASTERIDE
     Dosage: 5 MG, 1X/DAY AT BEDTIME
     Route: 048
  15. ZANTAC [Concomitant]
     Active Substance: RANITIDINE HYDROCHLORIDE
     Dosage: 150 MG, 2X/DAY
     Route: 048
  16. FIBER [Concomitant]
     Active Substance: PSYLLIUM HUSK
     Dosage: 1 CAPSULES, 1X/DAY
  17. AZILECT [Concomitant]
     Active Substance: RASAGILINE MESYLATE
     Dosage: 1 MG, 1X/DAY
     Route: 048
  18. OCUVITE WITH LUTEIN [Concomitant]
  19. CARBIDOPA/LEVODOPA ER [Concomitant]
     Active Substance: CARBIDOPA\LEVODOPA
     Dosage: 2 TABLETS, 2X/DAY
     Route: 048
  20. SEROQUEL [Concomitant]
     Active Substance: QUETIAPINE FUMARATE
  21. FOLIC ACID. [Concomitant]
     Active Substance: FOLIC ACID
  22. CULTURELLE DIGESTIVE HEALTH [Concomitant]
     Dosage: UNK UNK, 1X/DAY
     Route: 048
  23. ARMOUR THYROID [Concomitant]
     Active Substance: THYROID, PORCINE
     Dosage: 60 MG, 2X/DAY
     Route: 048
  24. NORTHERA [Concomitant]
     Active Substance: DROXIDOPA
     Dosage: 400 MG, 3X/DAY
     Route: 048
  25. COLACE [Concomitant]
     Active Substance: DOCUSATE SODIUM
     Dosage: 100 MG, 1X/DAY AS NEEDED
     Route: 048
  26. ZEASORB AF [Concomitant]
     Active Substance: MICONAZOLE NITRATE
     Dosage: UNK, 1X/DAY
     Route: 061
  27. KEPPRA [Suspect]
     Active Substance: LEVETIRACETAM
     Dosage: UNK
     Dates: start: 201908, end: 201908
  28. VITAMIN C [Concomitant]
     Active Substance: ASCORBIC ACID

REACTIONS (9)
  - Seizure [Recovering/Resolving]
  - Heat stroke [Recovered/Resolved]
  - Burns third degree [Recovering/Resolving]
  - Confusional state [Recovering/Resolving]
  - Acute respiratory failure [Recovered/Resolved]
  - Fall [Not Recovered/Not Resolved]
  - Loss of consciousness [Recovered/Resolved]
  - Burns second degree [Recovering/Resolving]
  - Pneumonia aspiration [Recovered/Resolved]

NARRATIVE: CASE EVENT DATE: 201903
